FAERS Safety Report 6097931-6 (Version None)
Quarter: 2009Q1

REPORT INFORMATION
  Report Type: 
  Country: None (occurrence: None)
  Receive Date: 20090227
  Receipt Date: 20090223
  Transmission Date: 20090719
  Serious: Yes (Hospitalization)
  Sender: FDA-Public Use
  Company Number: US-ELI_LILLY_AND_COMPANY-US200901002687

PATIENT
  Age: 66 Year
  Sex: Male
  Weight: 138.32 kg

DRUGS (10)
  1. HUMALOG [Suspect]
     Indication: TYPE 2 DIABETES MELLITUS
     Dosage: 10 U, 3/D
  2. HUMALOG [Suspect]
     Dosage: 20 U, UNK
  3. HUMULIN N [Suspect]
     Dosage: 75 U, UNK
  4. HUMULIN N [Suspect]
  5. PROTONIX /01263201/ [Concomitant]
  6. CRESTOR [Concomitant]
     Dosage: 5 MG, DAILY (1/D)
  7. FUROSEMIDE [Concomitant]
  8. METFORMIN [Concomitant]
     Indication: TYPE 2 DIABETES MELLITUS
  9. UROXATRAL [Concomitant]
     Dosage: 10 MG, UNK
  10. CIPRO [Concomitant]

REACTIONS (8)
  - BLOOD GLUCOSE INCREASED [None]
  - BLOOD PRESSURE INCREASED [None]
  - DRUG INEFFECTIVE [None]
  - FLUID RETENTION [None]
  - HEART RATE INCREASED [None]
  - PALPITATIONS [None]
  - WEIGHT DECREASED [None]
  - WEIGHT INCREASED [None]
